FAERS Safety Report 19871194 (Version 1)
Quarter: 2021Q3

REPORT INFORMATION
  Report Type: Spontaneous
  Country: DE (occurrence: DE)
  Receive Date: 20210923
  Receipt Date: 20210923
  Transmission Date: 20211014
  Serious: Yes (Congenital Anomaly)
  Sender: FDA-Public Use
  Company Number: DE-TEVA-2021-DE-1955506

PATIENT

DRUGS (1)
  1. NAPROXEN. [Suspect]
     Active Substance: NAPROXEN
     Dosage: 4?5 WEEKS OF GESTATION
     Route: 064

REACTIONS (2)
  - Oculoauriculovertebral dysplasia [Unknown]
  - Foetal exposure during pregnancy [Unknown]
